FAERS Safety Report 18285239 (Version 3)
Quarter: 2020Q4

REPORT INFORMATION
  Report Type: Report from Study
  Country: US (occurrence: US)
  Receive Date: 20200918
  Receipt Date: 20201016
  Transmission Date: 20210113
  Serious: Yes (Hospitalization)
  Sender: FDA-Public Use
  Company Number: US-JNJFOC-A-NJ2020-201211

PATIENT
  Age: 43 Year
  Sex: Female
  Weight: 109.87 kg

DRUGS (5)
  1. ADEMPAS [Concomitant]
     Active Substance: RIOCIGUAT
  2. VELETRI [Suspect]
     Active Substance: EPOPROSTENOL
     Indication: PULMONARY ARTERIAL HYPERTENSION
     Dosage: 8 NG/KG, PER MIN
     Route: 042
  3. VELETRI [Suspect]
     Active Substance: EPOPROSTENOL
     Route: 042
  4. VELETRI [Suspect]
     Active Substance: EPOPROSTENOL
     Dosage: 15 NG/KG/MIN
     Route: 042
  5. XARELTO [Concomitant]
     Active Substance: RIVAROXABAN

REACTIONS (14)
  - Oedema [Unknown]
  - Fluid overload [Unknown]
  - Headache [Unknown]
  - Pleural effusion [Unknown]
  - Dyspnoea [Unknown]
  - Flushing [Unknown]
  - Blood pressure abnormal [Unknown]
  - Pain in jaw [Unknown]
  - Nausea [Unknown]
  - Anaemia [Unknown]
  - Decreased appetite [Unknown]
  - Peripheral swelling [Unknown]
  - Constipation [Unknown]
  - Diarrhoea [Unknown]

NARRATIVE: CASE EVENT DATE: 202001
